FAERS Safety Report 17208849 (Version 4)
Quarter: 2021Q4

REPORT INFORMATION
  Report Type: Spontaneous
  Country: US (occurrence: US)
  Receive Date: 20191227
  Receipt Date: 20211001
  Transmission Date: 20220304
  Serious: Yes (Hospitalization)
  Sender: FDA-Public Use
  Company Number: US-PFIZER INC-2019556101

PATIENT
  Age: 65 Year
  Sex: Female
  Weight: 70 kg

DRUGS (8)
  1. PREGABALIN [Suspect]
     Active Substance: PREGABALIN
     Indication: Neuropathy peripheral
     Dosage: 100 MG, 3X/DAY
     Dates: start: 201909, end: 201911
  2. PREGABALIN [Suspect]
     Active Substance: PREGABALIN
     Indication: Pain
     Dosage: 300 MG, 1X/DAY (3 CAPSULES OF 100 MG A DAY SOMETIMES SHE WOULD TAKE ONE IN THE MORNING AND 2 AT NIG)
     Dates: start: 2019, end: 2019
  3. PREGABALIN [Suspect]
     Active Substance: PREGABALIN
     Indication: Paraesthesia
     Dosage: 100 MG, 3X/DAY
     Route: 048
  4. PREGABALIN [Suspect]
     Active Substance: PREGABALIN
     Indication: Hypoaesthesia
  5. PREGABALIN [Suspect]
     Active Substance: PREGABALIN
     Indication: Myelitis
  6. PREGABALIN [Suspect]
     Active Substance: PREGABALIN
     Indication: Pain in extremity
  7. PREGABALIN [Suspect]
     Active Substance: PREGABALIN
     Indication: Limb discomfort
  8. TIZANIDINE [Concomitant]
     Active Substance: TIZANIDINE
     Indication: Hypotonia
     Dosage: UNK

REACTIONS (10)
  - Feeling abnormal [Unknown]
  - Drug ineffective [Unknown]
  - Illness [Recovered/Resolved with Sequelae]
  - Movement disorder [Unknown]
  - Burning sensation [Unknown]
  - Gait disturbance [Unknown]
  - Body height decreased [Unknown]
  - Product dispensing error [Unknown]
  - Limb discomfort [Unknown]
  - Somnolence [Unknown]

NARRATIVE: CASE EVENT DATE: 20190101
